FAERS Safety Report 4990550-1 (Version None)
Quarter: 2006Q2

REPORT INFORMATION
  Report Type: 
  Country: None (occurrence: None)
  Receive Date: 20060427
  Receipt Date: 20060418
  Transmission Date: 20061013
  Serious: Yes (Other)
  Sender: FDA-Public Use
  Company Number: 2006036176

PATIENT
  Age: 7 Year
  Sex: Male
  Weight: 25.4014 kg

DRUGS (10)
  1. ZYRTEC [Suspect]
     Indication: MULTIPLE ALLERGIES
     Dosage: ORAL
     Route: 048
     Dates: start: 20050424
  2. ZITHROMAX [Suspect]
     Indication: ILL-DEFINED DISORDER
     Dosage: (200 MG)
     Dates: start: 20050513
  3. FLOVENT [Suspect]
     Indication: MULTIPLE ALLERGIES
     Dosage: 88 MCG (44 MCG, 2 IN 1 D), INHALATION
     Dates: start: 20050513
  4. FLOVENT [Suspect]
     Indication: PROPHYLAXIS
     Dosage: 88 MCG (44 MCG, 2 IN 1 D), INHALATION
     Dates: start: 20050513
  5. ALBUTEROL [Suspect]
     Indication: MULTIPLE ALLERGIES
     Dosage: (0.83 MG)
     Dates: start: 20050513
  6. ALBUTEROL [Suspect]
     Indication: PROPHYLAXIS
     Dosage: (0.83 MG)
     Dates: start: 20050513
  7. RHINOCORT [Suspect]
     Indication: ILL-DEFINED DISORDER
     Dosage: (32 MCG,), NASAL
     Route: 045
  8. MONTELUKAST              (MONTELUKAST) [Suspect]
     Indication: ILL-DEFINED DISORDER
     Dosage: (4 MG)
     Dates: start: 20050513
  9. AMOXICILLIN TRIHYDRATE/CLAVULANATE POTASSIUM [Concomitant]
  10. PATANOL [Concomitant]

REACTIONS (12)
  - AGGRESSION [None]
  - ANXIETY [None]
  - CHOKING [None]
  - DISTURBANCE IN ATTENTION [None]
  - DRUG INTERACTION [None]
  - FRUSTRATION [None]
  - IRRITABILITY [None]
  - LACRIMATION INCREASED [None]
  - PERFORMANCE STATUS DECREASED [None]
  - PERSONALITY CHANGE [None]
  - RHINORRHOEA [None]
  - STRESS [None]
